FAERS Safety Report 5901499-1 (Version None)
Quarter: 2008Q3

REPORT INFORMATION
  Report Type: 
  Country: None (occurrence: None)
  Receive Date: 20080926
  Receipt Date: 20080926
  Transmission Date: 20090109
  Serious: Yes (Other)
  Sender: FDA-Public Use
  Company Number: None

PATIENT
  Sex: Female
  Weight: 61.6892 kg

DRUGS (1)
  1. CEPHALEXIN [Suspect]
     Dosage: 500 MG PER DAY BID PO
     Route: 048
     Dates: start: 20080919, end: 20080926

REACTIONS (1)
  - NO ADVERSE EVENT [None]
